FAERS Safety Report 18841818 (Version 2)
Quarter: 2021Q1

REPORT INFORMATION
  Report Type: Spontaneous
  Country: NZ (occurrence: NZ)
  Receive Date: 20210203
  Receipt Date: 20210205
  Transmission Date: 20210419
  Serious: Yes (Hospitalization, Other)
  Sender: FDA-Public Use
  Company Number: NZ-ALLERGAN-2105096US

PATIENT
  Sex: Female

DRUGS (1)
  1. BOTOX [Suspect]
     Active Substance: ONABOTULINUMTOXINA
     Indication: SKIN WRINKLING
     Dosage: 20 UNITS, SINGLE
     Dates: start: 201804, end: 201804

REACTIONS (13)
  - Hyperhidrosis [Unknown]
  - Malaise [Not Recovered/Not Resolved]
  - Weight decreased [Unknown]
  - Alopecia [Unknown]
  - Tremor [Unknown]
  - Skin tightness [Unknown]
  - Gastric haemorrhage [Unknown]
  - Feeling abnormal [Unknown]
  - Panic attack [Unknown]
  - Feeding disorder [Unknown]
  - Bedridden [Unknown]
  - Abdominal pain upper [Unknown]
  - Paraesthesia [Unknown]

NARRATIVE: CASE EVENT DATE: 2018
